FAERS Safety Report 26080300 (Version 2)
Quarter: 2025Q4

REPORT INFORMATION
  Report Type: Spontaneous
  Country: US (occurrence: US)
  Receive Date: 20251124
  Receipt Date: 20251128
  Transmission Date: 20260118
  Serious: Yes (Other)
  Sender: IPSEN BIOPHARMACEUTICALS, INC.
  Company Number: US-IPSEN Group, Research and Development-2025-28582

PATIENT
  Age: 45 Year
  Sex: Female
  Weight: 48 kg

DRUGS (5)
  1. DYSPORT [Suspect]
     Active Substance: ABOBOTULINUMTOXINA
     Indication: Skin wrinkling
     Dosage: 154 UNITS OF DYSPORT RECONSTITUTED 1.5 ML TO 1 ML, DILUENT NOT PROVIDED, AND 4 UNITS RECONSTITUTED 1 ML TO 1 ML, DILUENT NOT PROVIDED, WHICH THE HCP STATED EQUELED TO 12 UNITS FOR A TOTAL OF 166 UNITS OF DYSPORT ON 05-NOV-2025. ?AREAS INJECTED WERE THE FRONTALIS, GLABELLAR, CROWS FEET, MENTALIS, AND
     Route: 030
     Dates: start: 20251105, end: 20251105
  2. DYSPORT [Suspect]
     Active Substance: ABOBOTULINUMTOXINA
     Indication: Skin wrinkling
  3. DYSPORT [Suspect]
     Active Substance: ABOBOTULINUMTOXINA
     Indication: Skin wrinkling
  4. DYSPORT [Suspect]
     Active Substance: ABOBOTULINUMTOXINA
     Indication: Off label use
  5. CYANOCOBALAMIN [Concomitant]
     Active Substance: CYANOCOBALAMIN
     Indication: Prophylaxis
     Route: 030

REACTIONS (4)
  - Dysphagia [Not Recovered/Not Resolved]
  - Off label use [Unknown]
  - Heart rate increased [Not Recovered/Not Resolved]
  - Muscle twitching [Not Recovered/Not Resolved]

NARRATIVE: CASE EVENT DATE: 20251105
